FAERS Safety Report 6303578-6 (Version None)
Quarter: 2009Q3

REPORT INFORMATION
  Report Type: 
  Country: None (occurrence: None)
  Receive Date: 20090810
  Receipt Date: 20090801
  Transmission Date: 20100115
  Serious: Yes (Hospitalization, Other)
  Sender: FDA-Public Use
  Company Number: US-AMGEN-QUU358431

PATIENT
  Sex: Female

DRUGS (1)
  1. ENBREL [Suspect]
     Indication: RHEUMATOID ARTHRITIS
     Route: 058
     Dates: start: 19990101

REACTIONS (9)
  - BRONCHITIS [None]
  - CATARACT OPERATION [None]
  - CEREBROVASCULAR ACCIDENT [None]
  - EYE DISORDER [None]
  - HERPES ZOSTER [None]
  - PNEUMONIA [None]
  - POST PROCEDURAL COMPLICATION [None]
  - SKIN EXFOLIATION [None]
  - VISION BLURRED [None]
